FAERS Safety Report 7934243-7 (Version None)
Quarter: 2011Q4

REPORT INFORMATION
  Report Type: 
  Country: None (occurrence: None)
  Receive Date: 20111122
  Receipt Date: 20110826
  Transmission Date: 20120403
  Serious: No
  Sender: FDA-Public Use
  Company Number: US-BAYER-2011-085031

PATIENT
  Age: 60 Year
  Sex: Female
  Weight: 66 kg

DRUGS (2)
  1. ALEVE (CAPLET) [Suspect]
     Dosage: 4 DF, ONCE
     Route: 048
     Dates: start: 20110826, end: 20110826
  2. XANAX [Concomitant]

REACTIONS (1)
  - NO ADVERSE EVENT [None]
